FAERS Safety Report 5767038-3 (Version None)
Quarter: 2008Q2

REPORT INFORMATION
  Report Type: 
  Country: None (occurrence: None)
  Receive Date: 20080612
  Receipt Date: 20080602
  Transmission Date: 20081010
  Serious: Yes (Hospitalization)
  Sender: FDA-Public Use
  Company Number: DZ-WYE-H04362008

PATIENT
  Age: 18 Month
  Sex: Male

DRUGS (1)
  1. OROKEN [Suspect]
     Indication: MENINGITIS BACTERIAL
     Route: 048
     Dates: start: 20080512, end: 20080521

REACTIONS (3)
  - GENERALISED ERYTHEMA [None]
  - PRURIGO [None]
  - TOXIC SKIN ERUPTION [None]
